FAERS Safety Report 9447812 (Version 1)
Quarter: 2013Q3

REPORT INFORMATION
  Report Type: Spontaneous
  Country: US (occurrence: US)
  Receive Date: 20130808
  Receipt Date: 20130808
  Transmission Date: 20140515
  Serious: No
  Sender: FDA-Public Use
  Company Number: US-009507513-1307USA011752

PATIENT
  Sex: Female
  Weight: 68.93 kg

DRUGS (1)
  1. IMPLANON [Suspect]
     Dosage: 1 DF, 3 YEARS
     Route: 059
     Dates: start: 20130512

REACTIONS (2)
  - Device breakage [Unknown]
  - No adverse event [Unknown]
